FAERS Safety Report 20743793 (Version 1)
Quarter: 2022Q2

REPORT INFORMATION
  Report Type: Spontaneous
  Country: CH (occurrence: CH)
  Receive Date: 20220425
  Receipt Date: 20220425
  Transmission Date: 20220721
  Serious: Yes (Hospitalization, Other)
  Sender: FDA-Public Use
  Company Number: CH-SA-2022SA130553

PATIENT
  Age: 75 Year
  Sex: Male

DRUGS (5)
  1. HEPARIN [Suspect]
     Active Substance: HEPARIN SODIUM
     Indication: Prophylaxis
     Dosage: PROPHYLACTIC UNFRACTIONED HEPARIN
  2. HEPARIN [Suspect]
     Active Substance: HEPARIN SODIUM
     Indication: Anticoagulant therapy
     Dosage: THERAPEUTIC UNFRACTIONED HEPARIN
  3. CLOPIDOGREL BISULFATE [Suspect]
     Active Substance: CLOPIDOGREL BISULFATE
     Indication: Antiplatelet therapy
     Dosage: UNK
  4. ASPIRIN [Suspect]
     Active Substance: ASPIRIN
     Indication: Antiplatelet therapy
     Dosage: UNK
  5. ARGATROBAN [Suspect]
     Active Substance: ARGATROBAN
     Indication: Heparin-induced thrombocytopenia
     Dosage: 0.92 (0.92) UG/KG/MIN

REACTIONS (5)
  - Shock haemorrhagic [Unknown]
  - Haematuria [Unknown]
  - Jugular vein haemorrhage [Unknown]
  - Heparin-induced thrombocytopenia [Unknown]
  - Jugular vein thrombosis [Unknown]
